FAERS Safety Report 5047208-2 (Version None)
Quarter: 2006Q3

REPORT INFORMATION
  Report Type: 
  Country: None (occurrence: None)
  Receive Date: 20060703
  Receipt Date: 20060619
  Transmission Date: 20061208
  Serious: Yes (Hospitalization)
  Sender: FDA-Public Use
  Company Number: A-JP2005-10689

PATIENT
  Age: 59 Year
  Sex: Female
  Weight: 47.5 kg

DRUGS (17)
  1. TRACLEER [Suspect]
     Indication: PULMONARY HYPERTENSION
     Dosage: 62.5  MG, BID, ORAL; 62.5 MG, QD, ORAL
     Route: 048
     Dates: start: 20050906, end: 20050914
  2. TRACLEER [Suspect]
     Indication: PULMONARY HYPERTENSION
     Dosage: 62.5  MG, BID, ORAL; 62.5 MG, QD, ORAL
     Route: 048
     Dates: start: 20050915, end: 20050916
  3. BENEXATE HYDROCHLORIDE BETADEX [Concomitant]
  4. TOCOPHERYL NICOTINATE (TOCOPHERYL NICOTINATE) [Concomitant]
  5. FERROUS CITRATE [Concomitant]
  6. FUROSEMIDE [Concomitant]
  7. LOXOPROFEN (LOXOPROFEN) [Concomitant]
  8. BERAPROST SODIUM (BERAPROST SODIUM) [Concomitant]
  9. PREDNISOLONE [Concomitant]
  10. FEXOFENADINE HYDROCHLORIDE [Concomitant]
  11. HYDROCORTISONE SODIUM SUCCINATE [Concomitant]
  12. HYDROXYZINE PAMOATE [Concomitant]
  13. SPIRONOLACTONE [Concomitant]
  14. OXYGEN (OXYGEN) [Concomitant]
  15. ALLOPURINOL [Concomitant]
  16. FAMOTIDNE (FAMOTIDINE) [Concomitant]
  17. OMEPRAZOLE [Concomitant]

REACTIONS (6)
  - DRUG ERUPTION [None]
  - EOSINOPHILIA [None]
  - FEELING HOT [None]
  - GENERALISED ERYTHEMA [None]
  - PRURITUS [None]
  - RASH GENERALISED [None]
